FAERS Safety Report 25075113 (Version 1)
Quarter: 2025Q1

REPORT INFORMATION
  Report Type: Spontaneous
  Country: CO (occurrence: CO)
  Receive Date: 20250313
  Receipt Date: 20250313
  Transmission Date: 20250408
  Serious: Yes (Hospitalization)
  Sender: SERVIER
  Company Number: CO-SERVIER-S25003055

PATIENT

DRUGS (8)
  1. ONCASPAR [Suspect]
     Active Substance: PEGASPARGASE
     Indication: Acute lymphocytic leukaemia
     Route: 042
     Dates: start: 20250226, end: 20250226
  2. MESNA [Suspect]
     Active Substance: MESNA
     Indication: Prophylaxis
     Dosage: 400 MG, QOD, D2 AND D4
     Route: 042
     Dates: start: 20250218, end: 20250220
  3. VINCRISTINE [Concomitant]
     Active Substance: VINCRISTINE
     Indication: Acute lymphocytic leukaemia
     Dosage: 0.8 MG, QD, D1 AND D6
     Route: 042
     Dates: start: 20250217, end: 20250222
  4. METHOTREXATE SODIUM [Concomitant]
     Active Substance: METHOTREXATE SODIUM
     Indication: Acute lymphocytic leukaemia
     Dosage: 2600 MG, QD, D1
     Route: 042
     Dates: start: 20250217, end: 20250217
  5. LEUCOVORIN CALCIUM [Concomitant]
     Active Substance: LEUCOVORIN CALCIUM
     Indication: Product used for unknown indication
     Dosage: 24 MG, QD, D2
     Route: 042
     Dates: start: 20250218, end: 20250218
  6. IFOSFAMIDE [Concomitant]
     Active Substance: IFOSFAMIDE
     Indication: Acute lymphocytic leukaemia
     Dosage: 420 MG, QOD, D2 AND D4
     Route: 042
     Dates: start: 20250218, end: 20250220
  7. DAUNORUBICIN [Concomitant]
     Active Substance: DAUNORUBICIN
     Indication: Acute lymphocytic leukaemia
     Dosage: 15 MG, QD, D5
     Route: 042
     Dates: start: 20250221, end: 20250221
  8. PEGFILGRASTIM [Concomitant]
     Active Substance: PEGFILGRASTIM
     Indication: Product used for unknown indication
     Dosage: 1 MG, QD, D8
     Route: 058
     Dates: start: 20250227, end: 20250227

REACTIONS (3)
  - Urticaria [Recovered/Resolved]
  - Abdominal pain [Recovered/Resolved]
  - Retching [Recovered/Resolved]

NARRATIVE: CASE EVENT DATE: 20250226
